FAERS Safety Report 8595531-7 (Version None)
Quarter: 2012Q3

REPORT INFORMATION
  Report Type: 
  Country: None (occurrence: None)
  Receive Date: 20120815
  Receipt Date: 20120806
  Transmission Date: 20120928
  Serious: Yes (Hospitalization)
  Sender: FDA-Public Use
  Company Number: CN-ASTRAZENECA-2012SE56337

PATIENT
  Sex: Female

DRUGS (2)
  1. XINKESHU [Suspect]
     Indication: HYPERTENSION
     Route: 048
     Dates: start: 20090303, end: 20090303
  2. FELODIPINE [Suspect]
     Indication: HYPERTENSION
     Route: 048
     Dates: start: 20090303, end: 20090303

REACTIONS (3)
  - ASTHMA [None]
  - PALPITATIONS [None]
  - DIZZINESS [None]
